FAERS Safety Report 19525790 (Version 1)
Quarter: 2021Q3

REPORT INFORMATION
  Report Type: Spontaneous
  Country: US (occurrence: US)
  Receive Date: 20210712
  Receipt Date: 20210712
  Transmission Date: 20211014
  Serious: No
  Sender: FDA-Public Use
  Company Number: None

PATIENT
  Sex: Female

DRUGS (1)
  1. MAVYRET [Suspect]
     Active Substance: GLECAPREVIR\PIBRENTASVIR
     Indication: HEPATITIS C
     Dosage: OTHER DOSE:300MG/120MG;?
     Route: 048
     Dates: start: 20210504

REACTIONS (6)
  - Abdominal distension [None]
  - Confusional state [None]
  - Urine odour abnormal [None]
  - Nausea [None]
  - Abdominal pain [None]
  - Acute hepatic failure [None]
